FAERS Safety Report 7150343-6 (Version None)
Quarter: 2010Q4

REPORT INFORMATION
  Report Type: 
  Country: None (occurrence: None)
  Receive Date: 20101123
  Receipt Date: 20101109
  Transmission Date: 20110411
  Serious: Yes (Hospitalization, Other)
  Sender: FDA-Public Use
  Company Number: 2010004724

PATIENT
  Age: 75 Year
  Sex: Female

DRUGS (15)
  1. ERLOTINIB HYDROCHLORIDE [Suspect]
     Indication: NON-SMALL CELL LUNG CANCER
     Dosage: (150 MG,DAILY),ORAL
     Route: 048
     Dates: start: 20081020, end: 20101001
  2. ATENOLOL [Concomitant]
  3. LIPITOR [Concomitant]
  4. LISINOPRIL [Concomitant]
  5. DITROPAN XL [Concomitant]
  6. TEGRETOL [Concomitant]
  7. BENZONATATE [Concomitant]
  8. LACTOBACILLUS [Concomitant]
  9. ONDANSETRON HYDROCHLORIDE [Concomitant]
  10. PANTOPRAZOLE [Concomitant]
  11. LAMOTRIGINE [Concomitant]
  12. MULTI-VITAMIN [Concomitant]
  13. OMEPRAZOLE [Concomitant]
  14. SENNOSIDE [Concomitant]
  15. NYSTATIN [Concomitant]

REACTIONS (8)
  - BLOOD GLUCOSE INCREASED [None]
  - GASTRITIS [None]
  - HAEMATOCRIT DECREASED [None]
  - HAEMOGLOBIN DECREASED [None]
  - INAPPROPRIATE ANTIDIURETIC HORMONE SECRETION [None]
  - METASTASES TO MENINGES [None]
  - NAUSEA [None]
  - VOMITING [None]
